FAERS Safety Report 14426352 (Version 4)
Quarter: 2019Q1

REPORT INFORMATION
  Report Type: Report from Study
  Country: JP (occurrence: JP)
  Receive Date: 20180123
  Receipt Date: 20190218
  Transmission Date: 20190417
  Serious: Yes (Hospitalization)
  Sender: FDA-Public Use
  Company Number: PHJP2017JP026723

PATIENT
  Age: 10 Month
  Sex: Male

DRUGS (111)
  1. ILARIS [Suspect]
     Active Substance: CANAKINUMAB
     Dosage: 40.5 MG, UNK
     Route: 058
     Dates: start: 20171205
  2. ILARIS [Suspect]
     Active Substance: CANAKINUMAB
     Dosage: 84 MG, UNK
     Route: 058
     Dates: start: 20180807
  3. SYNAGIS [Concomitant]
     Active Substance: PALIVIZUMAB
     Dosage: 50 MG, UNK
     Route: 030
     Dates: start: 20170131, end: 20170131
  4. MUCODYNE [Concomitant]
     Active Substance: CARBOCYSTEINE
     Dosage: 3.5 ML, UNK
     Route: 048
     Dates: start: 20170822, end: 20170904
  5. MUCODYNE [Concomitant]
     Active Substance: CARBOCYSTEINE
     Dosage: 210 MG, UNK
     Route: 048
     Dates: start: 20180420, end: 20180502
  6. MEPTIN [Concomitant]
     Active Substance: PROCATEROL HYDROCHLORIDE
     Dosage: 1.5 ML, UNK
     Route: 048
     Dates: start: 20170918, end: 20171001
  7. ONON [Concomitant]
     Active Substance: PRANLUKAST
     Indication: RESPIRATORY SYNCYTIAL VIRUS BRONCHIOLITIS
     Dosage: 35 MG, UNK
     Route: 048
     Dates: start: 20170721, end: 20170731
  8. RINDERON V [Concomitant]
     Active Substance: BETAMETHASONE VALERATE
     Dosage: 8 ML, UNK
     Route: 048
     Dates: start: 20180620, end: 20180703
  9. CLARITH [Concomitant]
     Active Substance: CLARITHROMYCIN
     Indication: PROPHYLAXIS
     Dosage: 40 MG, UNK
     Route: 048
     Dates: start: 20171128
  10. RINDERON VG [Concomitant]
     Active Substance: BETAMETHASONE VALERATE\GENTAMICIN SULFATE
     Indication: PROPHYLAXIS
     Dosage: 1 DF, UNK
     Route: 061
     Dates: start: 20180116, end: 20180122
  11. ACTHIB [Concomitant]
     Active Substance: HAEMOPHILUS B CONJUGATE VACCINE (TETANUS TOXOID CONJUGATE)\HAEMOPHILUS INFLUENZAE TYPE B STRAIN 1482 CAPSULAR POLYSACCHARIDE TETANUS TOXOID CONJUGATE ANTIGEN
     Indication: PROPHYLAXIS
     Dosage: 0.5 ML, UNK
     Route: 058
     Dates: start: 20180523, end: 20180523
  12. ILARIS [Suspect]
     Active Substance: CANAKINUMAB
     Dosage: 58.5 MG, UNK
     Route: 058
     Dates: start: 20180220
  13. FLOMOX [CEFCAPENE PIVOXIL HYDROCHLORIDE] [Suspect]
     Active Substance: CEFCAPENE PIVOXIL HYDROCHLORIDE
     Dosage: 60 MG, UNK
     Route: 048
     Dates: start: 20171017, end: 20171026
  14. SYNAGIS [Concomitant]
     Active Substance: PALIVIZUMAB
     Dosage: 100 MG, UNK
     Route: 030
     Dates: start: 20171017, end: 20171017
  15. PREDONINE [Concomitant]
     Active Substance: PREDNISOLONE
     Indication: RESPIRATORY SYNCYTIAL VIRUS BRONCHIOLITIS
     Dosage: 9 MG, QD
     Route: 042
     Dates: start: 20170104, end: 20170108
  16. MUCODYNE [Concomitant]
     Active Substance: CARBOCYSTEINE
     Dosage: 4 ML, UNK
     Route: 048
     Dates: start: 20171121, end: 20171211
  17. ASVERIN (TIPEPIDINE HIBENZATE) [Concomitant]
     Active Substance: TIPEPIDINE HIBENZATE
     Dosage: 3 ML, UNK
     Route: 048
     Dates: start: 20180219, end: 20180225
  18. ASVERIN (TIPEPIDINE HIBENZATE) [Concomitant]
     Active Substance: TIPEPIDINE HIBENZATE
     Dosage: 12 MG, UNK
     Route: 048
     Dates: start: 20180503, end: 20180509
  19. ASVERIN (TIPEPIDINE HIBENZATE) [Concomitant]
     Active Substance: TIPEPIDINE HIBENZATE
     Dosage: 3 ML, UNK
     Route: 048
     Dates: start: 20180620, end: 20180703
  20. ASVERIN (TIPEPIDINE HIBENZATE) [Concomitant]
     Active Substance: TIPEPIDINE HIBENZATE
     Dosage: 12 MG, UNK
     Route: 048
     Dates: start: 20181023, end: 20181105
  21. MEPTIN [Concomitant]
     Active Substance: PROCATEROL HYDROCHLORIDE
     Dosage: 1.5 ML, UNK
     Route: 048
     Dates: start: 20170822, end: 20170904
  22. MEPTIN [Concomitant]
     Active Substance: PROCATEROL HYDROCHLORIDE
     Dosage: 2 ML, UNK
     Route: 048
     Dates: start: 20180219, end: 20180225
  23. RINDERON V [Concomitant]
     Active Substance: BETAMETHASONE VALERATE
     Dosage: UNK
     Route: 048
     Dates: start: 20180219, end: 20180220
  24. RINDERON V [Concomitant]
     Active Substance: BETAMETHASONE VALERATE
     Dosage: 8 ML, UNK
     Route: 048
     Dates: start: 20181023, end: 20181025
  25. ROCEPHIN [Concomitant]
     Active Substance: CEFTRIAXONE SODIUM
     Dosage: 240 MG, QD
     Route: 042
     Dates: start: 20170302, end: 20170306
  26. BRUFEN [Concomitant]
     Active Substance: IBUPROFEN
     Dosage: 100 MG, UNK
     Route: 048
     Dates: start: 20181020, end: 20181023
  27. ILARIS [Suspect]
     Active Substance: CANAKINUMAB
     Dosage: 57 MG, UNK
     Route: 058
     Dates: start: 20180123
  28. ILARIS [Suspect]
     Active Substance: CANAKINUMAB
     Dosage: 90 MG, UNK
     Route: 058
     Dates: start: 20181204
  29. FLOMOX [CEFCAPENE PIVOXIL HYDROCHLORIDE] [Suspect]
     Active Substance: CEFCAPENE PIVOXIL HYDROCHLORIDE
     Indication: UPPER RESPIRATORY TRACT INFLAMMATION
     Dosage: 54 MG, UNK
     Route: 048
     Dates: start: 20170822, end: 20170824
  30. INCREMIN [Concomitant]
     Active Substance: FERRIC PYROPHOSPHATE
     Indication: ANAEMIA NEONATAL
     Dosage: 2.5 ML, UNK
     Route: 048
     Dates: end: 20170704
  31. MEPTIN [Concomitant]
     Active Substance: PROCATEROL HYDROCHLORIDE
     Dosage: 2 ML, UNK
     Route: 048
     Dates: start: 20171226, end: 20180102
  32. ONON [Concomitant]
     Active Substance: PRANLUKAST
     Dosage: 40 MG, UNK
     Route: 048
     Dates: start: 20170801, end: 20171204
  33. RINDERON V [Concomitant]
     Active Substance: BETAMETHASONE VALERATE
     Indication: UPPER RESPIRATORY TRACT INFLAMMATION
     Dosage: 2 ML, UNK
     Route: 048
     Dates: start: 20170726, end: 20170727
  34. BRUFEN [Concomitant]
     Active Substance: IBUPROFEN
     Dosage: 100 MG, UNK
     Route: 048
     Dates: start: 20180804, end: 20180807
  35. ILARIS [Suspect]
     Active Substance: CANAKINUMAB
     Dosage: 7.5 MG, UNK
     Route: 058
     Dates: start: 20170207
  36. ILARIS [Suspect]
     Active Substance: CANAKINUMAB
     Dosage: 84 MG, UNK
     Route: 058
     Dates: start: 20180904
  37. ILARIS [Suspect]
     Active Substance: CANAKINUMAB
     Dosage: 90 MG, UNK
     Route: 058
     Dates: start: 20181113
  38. FLOMOX [CEFCAPENE PIVOXIL HYDROCHLORIDE] [Suspect]
     Active Substance: CEFCAPENE PIVOXIL HYDROCHLORIDE
     Indication: IMPETIGO
     Dosage: 50 MG, UNK
     Route: 048
     Dates: start: 20170801, end: 20170806
  39. SYNAGIS [Concomitant]
     Active Substance: PALIVIZUMAB
     Dosage: 65 MG, UNK
     Route: 030
     Dates: start: 20170307, end: 20170307
  40. SYNAGIS [Concomitant]
     Active Substance: PALIVIZUMAB
     Dosage: 50 MG, UNK
     Route: 030
     Dates: start: 20170925, end: 20170925
  41. BIOFERMIN R [Concomitant]
     Active Substance: BACILLUS SUBTILIS\LACTOBACILLUS ACIDOPHILUS\STREPTOCOCCUS FAECAIS
     Dosage: 0.6 G, UNK
     Route: 048
     Dates: start: 20170918
  42. ALFAROL [Concomitant]
     Active Substance: ALFACALCIDOL
     Indication: PRODUCT USED FOR UNKNOWN INDICATION
     Dosage: 0.5 ML, UNK
     Route: 048
     Dates: end: 20170801
  43. PREDNISOLONE. [Concomitant]
     Active Substance: PREDNISOLONE
     Indication: CHRONIC INFANTILE NEUROLOGICAL CUTANEOUS AND ARTICULAR SYNDROME
     Dosage: UNK
     Route: 048
     Dates: start: 20161129, end: 20170110
  44. MUCODYNE-DS [Concomitant]
     Active Substance: CARBOCYSTEINE
     Indication: PROPHYLAXIS
     Dosage: 150 MG, UNK
     Route: 048
     Dates: start: 20170620, end: 20170624
  45. MUCODYNE-DS [Concomitant]
     Active Substance: CARBOCYSTEINE
     Dosage: 210 MG, UNK
     Route: 048
     Dates: start: 20181023, end: 20181105
  46. MUCODYNE [Concomitant]
     Active Substance: CARBOCYSTEINE
     Dosage: 4 ML, UNK
     Route: 048
     Dates: start: 20180219, end: 20180225
  47. MUCODYNE [Concomitant]
     Active Substance: CARBOCYSTEINE
     Dosage: 4.5 ML, UNK
     Route: 048
     Dates: start: 20180503, end: 20180509
  48. MUCODYNE [Concomitant]
     Active Substance: CARBOCYSTEINE
     Dosage: 4 ML, UNK
     Route: 048
     Dates: start: 20180620, end: 20180703
  49. ASVERIN (TIPEPIDINE HIBENZATE) [Concomitant]
     Active Substance: TIPEPIDINE HIBENZATE
     Indication: RESPIRATORY SYNCYTIAL VIRUS BRONCHIOLITIS
     Dosage: 1.2 ML, QD
     Route: 048
     Dates: start: 20170104, end: 20170117
  50. BRUFEN [Concomitant]
     Active Substance: IBUPROFEN
     Indication: CRYOPYRIN ASSOCIATED PERIODIC SYNDROME
     Dosage: 150 MG, UNK
     Route: 048
     Dates: start: 20180117, end: 20180123
  51. BRUFEN [Concomitant]
     Active Substance: IBUPROFEN
     Dosage: 100 MG, UNK
     Route: 048
     Dates: start: 20180929, end: 20181002
  52. ILARIS [Suspect]
     Active Substance: CANAKINUMAB
     Dosage: 10.9 MG, UNK
     Route: 058
     Dates: start: 20170530
  53. ILARIS [Suspect]
     Active Substance: CANAKINUMAB
     Dosage: 36 MG, UNK
     Route: 058
     Dates: start: 20170829
  54. PREVNAR 13 [Concomitant]
     Active Substance: PNEUMOCOCCAL 13-VALENT CONJUGATE VACCINE
     Indication: PROPHYLAXIS
     Dosage: 0.5 ML, QD
     Route: 058
     Dates: start: 20170123, end: 20170123
  55. PREDNISOLONE. [Concomitant]
     Active Substance: PREDNISOLONE
     Dosage: 1.5 MG, UNK
     Route: 048
     Dates: start: 20161221, end: 20161227
  56. MUCODYNE [Concomitant]
     Active Substance: CARBOCYSTEINE
     Dosage: 3 ML, UNK
     Route: 048
     Dates: start: 20170721, end: 20170731
  57. MUCODYNE [Concomitant]
     Active Substance: CARBOCYSTEINE
     Dosage: 3.5 ML, UNK
     Route: 048
     Dates: start: 20170918, end: 20171001
  58. MUCODYNE [Concomitant]
     Active Substance: CARBOCYSTEINE
     Dosage: 4 ML, UNK
     Route: 048
     Dates: start: 20171226, end: 20180102
  59. ASVERIN (TIPEPIDINE HIBENZATE) [Concomitant]
     Active Substance: TIPEPIDINE HIBENZATE
     Indication: UPPER RESPIRATORY TRACT INFLAMMATION
     Dosage: 3 ML, UNK
     Route: 048
     Dates: start: 20170721, end: 20170731
  60. ASVERIN (TIPEPIDINE HIBENZATE) [Concomitant]
     Active Substance: TIPEPIDINE HIBENZATE
     Dosage: 2 ML, UNK
     Route: 048
     Dates: start: 20171121, end: 20171211
  61. RINDERON V [Concomitant]
     Active Substance: BETAMETHASONE VALERATE
     Dosage: 4 ML, UNK
     Route: 048
     Dates: start: 20171121, end: 20171123
  62. ALPINY [Concomitant]
     Active Substance: ACETAMINOPHEN
     Indication: PYREXIA
     Dosage: 50 MG, UNK
     Route: 054
     Dates: start: 20170412, end: 20170412
  63. BRUFEN [Concomitant]
     Active Substance: IBUPROFEN
     Dosage: 100 MG, UNK
     Route: 048
     Dates: start: 20180620, end: 20180710
  64. BRUFEN [Concomitant]
     Active Substance: IBUPROFEN
     Dosage: 100 MG, UNK
     Route: 048
     Dates: start: 20180901, end: 20180904
  65. ILARIS [Suspect]
     Active Substance: CANAKINUMAB
     Dosage: 40.5 MG, UNK
     Route: 058
     Dates: start: 20171107
  66. ILARIS [Suspect]
     Active Substance: CANAKINUMAB
     Dosage: 55.5 MG, UNK
     Route: 058
     Dates: start: 20171226
  67. ILARIS [Suspect]
     Active Substance: CANAKINUMAB
     Dosage: 84 MG, UNK
     Route: 058
     Dates: start: 20180710
  68. SYNAGIS [Concomitant]
     Active Substance: PALIVIZUMAB
     Indication: PROPHYLAXIS
     Dosage: 50 MG, UNK
     Route: 030
     Dates: start: 20161226, end: 20161226
  69. PREDNISOLONE. [Concomitant]
     Active Substance: PREDNISOLONE
     Indication: PRODUCT USED FOR UNKNOWN INDICATION
     Dosage: 2.5 MG, UNK
     Route: 048
     Dates: end: 20161220
  70. ASVERIN (TIPEPIDINE HIBENZATE) [Concomitant]
     Active Substance: TIPEPIDINE HIBENZATE
     Indication: PROPHYLAXIS
     Dosage: 6 MG, UNK
     Route: 048
     Dates: start: 20170620, end: 20170624
  71. MUCODYNE [Concomitant]
     Active Substance: CARBOCYSTEINE
     Indication: RESPIRATORY SYNCYTIAL VIRUS BRONCHIOLITIS
     Dosage: 1.8 ML, QD
     Route: 048
     Dates: start: 20170104, end: 20170117
  72. ASVERIN (TIPEPIDINE HIBENZATE) [Concomitant]
     Active Substance: TIPEPIDINE HIBENZATE
     Dosage: 1.5 ML, UNK
     Route: 048
     Dates: start: 20170822, end: 20170904
  73. ONON [Concomitant]
     Active Substance: PRANLUKAST
     Dosage: 50 MG, UNK
     Route: 048
     Dates: start: 20171205
  74. RINDERON V [Concomitant]
     Active Substance: BETAMETHASONE VALERATE
     Dosage: 6 ML, UNK
     Route: 048
     Dates: start: 20180220, end: 20180221
  75. BANAN [Concomitant]
     Active Substance: CEFPODOXIME PROXETIL
     Indication: RESPIRATORY SYNCYTIAL VIRUS BRONCHIOLITIS
     Dosage: 27 MG, QD
     Route: 048
     Dates: start: 20170108, end: 20170110
  76. OXYGEN. [Concomitant]
     Active Substance: OXYGEN
     Indication: RESPIRATORY SYNCYTIAL VIRUS BRONCHIOLITIS
     Dosage: UNK
     Route: 065
     Dates: start: 20170104, end: 20170110
  77. HIRUDOID [Concomitant]
     Active Substance: GLYCOSAMINOGLYCANS
     Indication: PROPHYLAXIS
     Dosage: 1 TO 2 DF
     Route: 061
     Dates: start: 20181023, end: 20181105
  78. BRUFEN [Concomitant]
     Active Substance: IBUPROFEN
     Indication: PROPHYLAXIS
     Dosage: 100 MG, UNK
     Dates: start: 20180413, end: 20180417
  79. BRUFEN [Concomitant]
     Active Substance: IBUPROFEN
     Dosage: 100 MG, UNK
     Route: 048
     Dates: start: 20180511, end: 20180515
  80. BRUFEN [Concomitant]
     Active Substance: IBUPROFEN
     Dosage: 100 MG, UNK
     Route: 048
     Dates: start: 20180609, end: 20180612
  81. ILARIS [Suspect]
     Active Substance: CANAKINUMAB
     Dosage: 9.5 MG, UNK
     Route: 058
     Dates: start: 20170404
  82. ILARIS [Suspect]
     Active Substance: CANAKINUMAB
     Dosage: 34.5 MG, UNK
     Route: 058
     Dates: start: 20170704
  83. ILARIS [Suspect]
     Active Substance: CANAKINUMAB
     Dosage: 37.5 MG, UNK
     Route: 058
     Dates: start: 20171010
  84. ILARIS [Suspect]
     Active Substance: CANAKINUMAB
     Dosage: 60 MG, UNK
     Route: 058
     Dates: start: 20180320
  85. ILARIS [Suspect]
     Active Substance: CANAKINUMAB
     Dosage: 61.5 MG, UNK
     Route: 058
     Dates: start: 20180417
  86. ILARIS [Suspect]
     Active Substance: CANAKINUMAB
     Dosage: 63 MG, UNK
     Route: 058
     Dates: start: 20180515
  87. ILARIS [Suspect]
     Active Substance: CANAKINUMAB
     Dosage: 66 MG, UNK
     Route: 058
     Dates: start: 20180612
  88. PREVNAR 13 [Concomitant]
     Active Substance: PNEUMOCOCCAL 13-VALENT CONJUGATE VACCINE
     Dosage: 0.5 ML, QD
     Route: 058
     Dates: start: 20170227, end: 20170227
  89. PREVNAR 13 [Concomitant]
     Active Substance: PNEUMOCOCCAL 13-VALENT CONJUGATE VACCINE
     Dosage: 0.5 ML, QD
     Route: 058
     Dates: start: 20170410, end: 20170410
  90. SYNAGIS [Concomitant]
     Active Substance: PALIVIZUMAB
     Dosage: 100 MG, UNK
     Route: 030
     Dates: start: 20171128, end: 20171128
  91. CLAFORAN [Concomitant]
     Active Substance: CEFOTAXIME SODIUM
     Indication: RESPIRATORY SYNCYTIAL VIRUS BRONCHIOLITIS
     Dosage: 300 MG, QD
     Route: 042
     Dates: start: 20170106, end: 20170108
  92. ASVERIN (TIPEPIDINE HIBENZATE) [Concomitant]
     Active Substance: TIPEPIDINE HIBENZATE
     Dosage: 3 ML, UNK
     Route: 048
     Dates: start: 20171226, end: 20180102
  93. MEPTIN [Concomitant]
     Active Substance: PROCATEROL HYDROCHLORIDE
     Indication: RESPIRATORY SYNCYTIAL VIRUS BRONCHIOLITIS
     Dosage: 1.2 ML, QD
     Route: 048
     Dates: start: 20170104, end: 20170117
  94. ONON [Concomitant]
     Active Substance: PRANLUKAST
     Indication: PROPHYLAXIS
     Dosage: 20 MG, QD
     Route: 048
     Dates: start: 20170104, end: 20170117
  95. RINDERON V [Concomitant]
     Active Substance: BETAMETHASONE VALERATE
     Indication: RESPIRATORY SYNCYTIAL VIRUS BRONCHIOLITIS
     Dosage: 0.75 ML, QD
     Route: 048
     Dates: start: 20170108, end: 20170110
  96. RINDERON V [Concomitant]
     Active Substance: BETAMETHASONE VALERATE
     Dosage: UNK
     Route: 048
     Dates: start: 20171224, end: 20171226
  97. ROCEPHIN [Concomitant]
     Active Substance: CEFTRIAXONE SODIUM
     Indication: PYREXIA
     Dosage: 210 MG, UNK
     Route: 042
     Dates: start: 20170301, end: 20170301
  98. ILARIS [Suspect]
     Active Substance: CANAKINUMAB
     Indication: CRYOPYRIN ASSOCIATED PERIODIC SYNDROME
     Dosage: 5.5 MG, UNK
     Route: 058
     Dates: start: 20161216
  99. ILARIS [Suspect]
     Active Substance: CANAKINUMAB
     Dosage: 22.5 MG, UNK
     Route: 058
     Dates: start: 20170613
  100. ILARIS [Suspect]
     Active Substance: CANAKINUMAB
     Dosage: 88.5 MG, UNK
     Route: 058
     Dates: start: 20181002
  101. ILARIS [Suspect]
     Active Substance: CANAKINUMAB
     Dosage: 88.5 MG, UNK
     Route: 058
     Dates: start: 20181023
  102. FLOMOX [CEFCAPENE PIVOXIL HYDROCHLORIDE] [Suspect]
     Active Substance: CEFCAPENE PIVOXIL HYDROCHLORIDE
     Dosage: 60 MG, UNK
     Route: 048
     Dates: start: 20171105, end: 20171106
  103. HB VACCINE [Concomitant]
     Indication: PROPHYLAXIS
     Dosage: 0.25 ML, UNK
     Route: 058
     Dates: start: 20170130, end: 20170130
  104. HEPTAVAX [Concomitant]
     Indication: PROPHYLAXIS
     Dosage: 0.25 ML, UNK
     Route: 058
     Dates: start: 20170313, end: 20170313
  105. BIOFERMIN R [Concomitant]
     Active Substance: BACILLUS SUBTILIS\LACTOBACILLUS ACIDOPHILUS\STREPTOCOCCUS FAECAIS
     Indication: PROPHYLAXIS
     Dosage: 0.5 G, UNK
     Route: 048
     Dates: start: 20170301, end: 20170306
  106. MUCODYNE [Concomitant]
     Active Substance: CARBOCYSTEINE
     Dosage: 210 MG, UNK
     Route: 048
     Dates: start: 20180326, end: 20180401
  107. ASVERIN (TIPEPIDINE HIBENZATE) [Concomitant]
     Active Substance: TIPEPIDINE HIBENZATE
     Dosage: 12 MG, UNK
     Route: 048
     Dates: start: 20180326, end: 20180401
  108. ASVERIN (TIPEPIDINE HIBENZATE) [Concomitant]
     Active Substance: TIPEPIDINE HIBENZATE
     Dosage: 12 MG, UNK
     Route: 048
     Dates: start: 20180420, end: 20180502
  109. MEPTIN [Concomitant]
     Active Substance: PROCATEROL HYDROCHLORIDE
     Dosage: 1.5 ML, UNK
     Route: 048
     Dates: start: 20170822, end: 20170904
  110. RINDERON V [Concomitant]
     Active Substance: BETAMETHASONE VALERATE
     Dosage: 6 ML, UNK
     Route: 048
     Dates: start: 20171226, end: 20171229
  111. BRUFEN [Concomitant]
     Active Substance: IBUPROFEN
     Dosage: 100 MG, UNK
     Route: 048
     Dates: start: 20181104, end: 20181113

REACTIONS (22)
  - Exanthema subitum [Recovering/Resolving]
  - Productive cough [Unknown]
  - Rhinorrhoea [Unknown]
  - Alanine aminotransferase increased [Recovering/Resolving]
  - Upper respiratory tract inflammation [Recovering/Resolving]
  - Aspartate aminotransferase increased [Recovering/Resolving]
  - Oral mucosal eruption [Unknown]
  - Rash [Unknown]
  - Oral herpes [Recovering/Resolving]
  - Gingival bleeding [Recovering/Resolving]
  - Hand-foot-and-mouth disease [Recovering/Resolving]
  - Cough [Unknown]
  - Wheezing [Unknown]
  - Nasopharyngitis [Unknown]
  - Gingival swelling [Recovering/Resolving]
  - Pyrexia [Unknown]
  - Adenovirus infection [Recovering/Resolving]
  - Impetigo [Recovering/Resolving]
  - Hepatic function abnormal [Recovering/Resolving]
  - Asthma [Recovering/Resolving]
  - Viral infection [Unknown]
  - Sneezing [Unknown]

NARRATIVE: CASE EVENT DATE: 20170721
